FAERS Safety Report 7228493-5 (Version None)
Quarter: 2011Q1

REPORT INFORMATION
  Report Type: 
  Country: None (occurrence: None)
  Receive Date: 20110116
  Receipt Date: 20110106
  Transmission Date: 20110831
  Serious: Yes (Hospitalization)
  Sender: FDA-Public Use
  Company Number: PHHY2011US01687

PATIENT
  Sex: Male

DRUGS (2)
  1. TOBI [Suspect]
     Indication: BRONCHIECTASIS
     Dosage: 300 MG, BID
     Route: 045
  2. TOBI [Suspect]
     Indication: BRONCHITIS

REACTIONS (1)
  - BRONCHIECTASIS [None]
